FAERS Safety Report 6231719-8 (Version None)
Quarter: 2009Q2

REPORT INFORMATION
  Report Type: 
  Country: None (occurrence: None)
  Receive Date: 20090616
  Receipt Date: 20090608
  Transmission Date: 20091009
  Serious: Yes (Life-Threatening, Other)
  Sender: FDA-Public Use
  Company Number: JP-PFIZER INC-2009216264

PATIENT
  Age: 60 Year

DRUGS (3)
  1. IDAMYCIN [Suspect]
     Indication: ACUTE PROMYELOCYTIC LEUKAEMIA
     Dosage: UNK
     Route: 042
     Dates: start: 20080410, end: 20080916
  2. CYLOCIDE [Suspect]
     Indication: ACUTE PROMYELOCYTIC LEUKAEMIA
     Dosage: 140 MG, 1X/DAY
     Route: 042
     Dates: start: 20080910, end: 20080916
  3. VESANOID [Concomitant]
     Indication: ACUTE PROMYELOCYTIC LEUKAEMIA
     Dosage: 3X/DAY (30MG-20MG-30MG)
     Route: 048
     Dates: start: 20080908, end: 20080911

REACTIONS (1)
  - FEBRILE NEUTROPENIA [None]
